FAERS Safety Report 4519420-X (Version None)
Quarter: 2004Q4

REPORT INFORMATION
  Report Type: 
  Country: None (occurrence: None)
  Receive Date: 20041202
  Receipt Date: 20041129
  Transmission Date: 20050328
  Serious: Yes (Hospitalization)
  Sender: FDA-Public Use
  Company Number: 200413273GDS

PATIENT
  Age: 82 Year
  Sex: Female

DRUGS (6)
  1. ACETYLSALICYLIC ACID [Suspect]
     Dosage: 80 MG, TOTAL DAILY
  2. TIROFIBAN [Suspect]
  3. NADROPARIN [Suspect]
     Dosage: 0.6 ML, BID
  4. CLOPIDOGREL [Suspect]
     Dosage: 75 MG, TOTAL DAILY
  5. ACENOCOUMAROL [Concomitant]
  6. NADROPARIN [Concomitant]

REACTIONS (1)
  - THROMBOCYTOPENIA [None]
